FAERS Safety Report 8532493-2 (Version None)
Quarter: 2012Q3

REPORT INFORMATION
  Report Type: 
  Country: None (occurrence: None)
  Receive Date: 20120716
  Receipt Date: 20120716
  Transmission Date: 20120928
  Serious: No
  Sender: FDA-Public Use
  Company Number: None

PATIENT
  Age: 64 Month
  Sex: Male
  Weight: 104.3273 kg

DRUGS (2)
  1. CYMBALTA [Suspect]
     Indication: OSTEOARTHRITIS
     Dosage: 60 MG 1 X PER DAY PO
     Route: 048
     Dates: start: 20120713, end: 20120714
  2. CYMBALTA [Suspect]
     Indication: NEUROPATHY PERIPHERAL
     Dosage: 60 MG 1 X PER DAY PO
     Route: 048
     Dates: start: 20120713, end: 20120714

REACTIONS (2)
  - GASTROOESOPHAGEAL REFLUX DISEASE [None]
  - DYSPEPSIA [None]
